APPROVED DRUG PRODUCT: DEXTROAMPHETAMINE SULFATE
Active Ingredient: DEXTROAMPHETAMINE SULFATE
Strength: 10MG
Dosage Form/Route: TABLET;ORAL
Application: A206588 | Product #002
Applicant: NESHER PHARMACEUTICALS USA LLC
Approved: Mar 28, 2016 | RLD: No | RS: No | Type: DISCN